FAERS Safety Report 5007805-7 (Version None)
Quarter: 2006Q2

REPORT INFORMATION
  Report Type: 
  Country: None (occurrence: None)
  Receive Date: 20060522
  Receipt Date: 20060516
  Transmission Date: 20061013
  Serious: Yes (Hospitalization)
  Sender: FDA-Public Use
  Company Number: 447035

PATIENT
  Age: 90 Year
  Sex: Female

DRUGS (12)
  1. CARVEDILOL [Suspect]
     Dosage: 6.25MG TWICE PER DAY
     Route: 048
     Dates: start: 20040806, end: 20040821
  2. TORSEMIDE [Suspect]
     Dosage: 5MG PER DAY
     Route: 048
     Dates: end: 20040820
  3. ATACAND [Suspect]
     Indication: ESSENTIAL HYPERTENSION
     Dosage: 16MG PER DAY
     Route: 048
     Dates: start: 20040807, end: 20040812
  4. ATACAND HCT [Suspect]
     Dosage: 16MG PER DAY
     Route: 048
     Dates: start: 20040813, end: 20040824
  5. NORVASC [Suspect]
     Dosage: 10MG PER DAY
     Route: 048
     Dates: start: 20040815
  6. TEGRETOL [Suspect]
     Indication: TRIGEMINAL NEURALGIA
     Dosage: 200MG TWICE PER DAY
     Route: 048
     Dates: end: 20040826
  7. RIVOTRIL [Concomitant]
     Dates: start: 20040827
  8. PLAVIX [Concomitant]
  9. TOLVON [Concomitant]
     Dates: start: 20040807
  10. SELIPRAN [Concomitant]
  11. STILNOX [Concomitant]
  12. NITRODERM [Concomitant]

REACTIONS (3)
  - DRUG INEFFECTIVE [None]
  - DRUG INTERACTION [None]
  - HYPERTENSION [None]
